FAERS Safety Report 7825489-7 (Version None)
Quarter: 2011Q4

REPORT INFORMATION
  Report Type: 
  Country: None (occurrence: None)
  Receive Date: 20111019
  Receipt Date: 20111013
  Transmission Date: 20120403
  Serious: Yes (Other)
  Sender: FDA-Public Use
  Company Number: US-PFIZER INC-2011245846

PATIENT
  Sex: Female
  Weight: 47.619 kg

DRUGS (3)
  1. GEODON [Suspect]
     Indication: DEMENTIA ALZHEIMER'S TYPE
     Dosage: UNK
  2. GEODON [Suspect]
     Indication: PARANOIA
  3. GEODON [Suspect]
     Indication: MANIA

REACTIONS (4)
  - AGGRESSION [None]
  - ANXIETY [None]
  - PANIC ATTACK [None]
  - DYSPHAGIA [None]
